FAERS Safety Report 13768590 (Version 4)
Quarter: 2017Q3

REPORT INFORMATION
  Report Type: Report from Study
  Country: None (occurrence: AU)
  Receive Date: 20170719
  Receipt Date: 20170830
  Transmission Date: 20171127
  Serious: Yes (Hospitalization, Other)
  Sender: FDA-Public Use
  Company Number: AU-ABBVIE-16K-008-1712026-00

PATIENT
  Age: 51 Year
  Sex: Female

DRUGS (4)
  1. DUODOPA [Suspect]
     Active Substance: CARBIDOPA\LEVODOPA
     Dosage: 24 HOUR THERAPY/PEG-J
     Route: 050
  2. QUETIAPINE. [Concomitant]
     Active Substance: QUETIAPINE
     Indication: PRODUCT USED FOR UNKNOWN INDICATION
  3. CLONAZEPAM. [Concomitant]
     Active Substance: CLONAZEPAM
     Indication: PRODUCT USED FOR UNKNOWN INDICATION
  4. DUODOPA [Suspect]
     Active Substance: CARBIDOPA\LEVODOPA
     Indication: PARKINSON^S DISEASE
     Dosage: 16 HR INFUSION
     Route: 050
     Dates: start: 20120116, end: 20160820

REACTIONS (11)
  - Dopamine dysregulation syndrome [Not Recovered/Not Resolved]
  - Drug effect incomplete [Unknown]
  - Device dislocation [Unknown]
  - Device alarm issue [Recovered/Resolved]
  - Embedded device [Recovered/Resolved]
  - Hallucination [Unknown]
  - Embedded device [Recovered/Resolved]
  - Mobility decreased [Unknown]
  - Cognitive disorder [Not Recovered/Not Resolved]
  - Stoma site infection [Not Recovered/Not Resolved]
  - Nosocomial infection [Recovering/Resolving]

NARRATIVE: CASE EVENT DATE: 201608
